FAERS Safety Report 11850791 (Version 1)
Quarter: 2015Q4

REPORT INFORMATION
  Report Type: Spontaneous
  Country: US (occurrence: US)
  Receive Date: 20151218
  Receipt Date: 20151218
  Transmission Date: 20160305
  Serious: No
  Sender: FDA-Public Use
  Company Number: US-JNJFOC-20151200469

PATIENT
  Age: 72 Year
  Weight: 57.15 kg

DRUGS (3)
  1. WOMENS ROGAINE [Suspect]
     Active Substance: MINOXIDIL
     Route: 061
  2. WOMENS ROGAINE [Suspect]
     Active Substance: MINOXIDIL
     Indication: ALOPECIA
     Route: 061
     Dates: start: 20151125, end: 20151130
  3. VITAMIN B [Concomitant]
     Active Substance: VITAMIN B
     Indication: VITAMIN B COMPLEX DEFICIENCY
     Dosage: FROM YEARS
     Route: 065

REACTIONS (2)
  - Skin irritation [Unknown]
  - Overdose [Unknown]

NARRATIVE: CASE EVENT DATE: 20151125
